FAERS Safety Report 4854707-2 (Version None)
Quarter: 2005Q4

REPORT INFORMATION
  Report Type: 
  Country: None (occurrence: None)
  Receive Date: 20051214
  Receipt Date: 20051214
  Transmission Date: 20060501
  Serious: Yes (Other)
  Sender: FDA-Public Use
  Company Number: None

PATIENT
  Age: 3 Year
  Sex: Male
  Weight: 15.8759 kg

DRUGS (1)
  1. ZYRTEC [Suspect]
     Indication: ALLERGY TO ANIMAL
     Dosage: 5 MG -ONE TEASPOON- DAILY PO
     Route: 048
     Dates: start: 20050618, end: 20051120

REACTIONS (2)
  - DYSPHEMIA [None]
  - FRUSTRATION [None]
